FAERS Safety Report 16072226 (Version 2)
Quarter: 2019Q1

REPORT INFORMATION
  Report Type: Spontaneous
  Country: US (occurrence: US)
  Receive Date: 20190314
  Receipt Date: 20190325
  Transmission Date: 20190418
  Serious: Yes (Hospitalization, Other)
  Sender: FDA-Public Use
  Company Number: US-PFIZER INC-2019107384

PATIENT
  Age: 52 Year
  Sex: Male

DRUGS (2)
  1. INSULIN GLARGINE [Concomitant]
     Active Substance: INSULIN GLARGINE
     Dosage: UNK
  2. CLINDAMYCIN HCL [Suspect]
     Active Substance: CLINDAMYCIN HYDROCHLORIDE
     Indication: OSTEOMYELITIS CHRONIC
     Dosage: 600 MG, EVERY 8 HOURS
     Route: 048

REACTIONS (3)
  - Acute kidney injury [Recovered/Resolved]
  - Decreased appetite [Unknown]
  - Nausea [Unknown]
